FAERS Safety Report 4824165-2 (Version None)
Quarter: 2005Q4

REPORT INFORMATION
  Report Type: 
  Country: None (occurrence: None)
  Receive Date: 20051108
  Receipt Date: 20051021
  Transmission Date: 20060501
  Serious: Yes (Death, Other)
  Sender: FDA-Public Use
  Company Number: USA050187550

PATIENT
  Age: 32 Year
  Sex: Male

DRUGS (2)
  1. ZYPREXA [Suspect]
     Indication: SCHIZOPHRENIA
     Dosage: 40 MG DAY
     Dates: end: 20040902
  2. ATIVAN [Concomitant]

REACTIONS (2)
  - ACCIDENTAL OVERDOSE [None]
  - CARDIOMEGALY [None]
